FAERS Safety Report 5806445-7 (Version None)
Quarter: 2008Q3

REPORT INFORMATION
  Report Type: 
  Country: None (occurrence: None)
  Receive Date: 20080710
  Receipt Date: 20080628
  Transmission Date: 20090109
  Serious: Yes (Other)
  Sender: FDA-Public Use
  Company Number: US-PFIZER INC-2008048551

PATIENT
  Sex: Male
  Weight: 120.2 kg

DRUGS (12)
  1. CHANTIX [Suspect]
     Indication: SMOKING CESSATION THERAPY
     Dates: start: 20080518, end: 20080525
  2. XANAX [Concomitant]
  3. LIPITOR [Concomitant]
  4. PERCOCET [Concomitant]
  5. LISINOPRIL [Concomitant]
  6. AVODART [Concomitant]
  7. ZOLOFT [Concomitant]
     Route: 048
  8. PRAZOSIN HCL [Concomitant]
  9. ATENOLOL [Concomitant]
     Indication: BLOOD PRESSURE
     Route: 048
  10. FINASTERIDE [Concomitant]
     Indication: PROSTATE CANCER
     Route: 048
  11. TERAZOSIN HYDROCHLORIDE [Concomitant]
     Indication: PROSTATE CANCER
     Route: 048
  12. SIMVASTATIN [Concomitant]
     Indication: HYPERLIPIDAEMIA
     Route: 048

REACTIONS (1)
  - APNOEA [None]
